FAERS Safety Report 14999439 (Version 4)
Quarter: 2019Q1

REPORT INFORMATION
  Report Type: Spontaneous
  Country: US (occurrence: US)
  Receive Date: 20180612
  Receipt Date: 20190215
  Transmission Date: 20190417
  Serious: No
  Sender: FDA-Public Use
  Company Number: US-PFIZER INC-2018237815

PATIENT
  Age: 44 Year
  Sex: Male
  Weight: 192.7 kg

DRUGS (1)
  1. XELJANZ XR [Suspect]
     Active Substance: TOFACITINIB CITRATE
     Indication: RHEUMATOID ARTHRITIS
     Dosage: 11 MG, ONCE A DAY
     Route: 048

REACTIONS (5)
  - Intentional product misuse [Unknown]
  - Drug ineffective [Unknown]
  - Condition aggravated [Unknown]
  - Arthralgia [Unknown]
  - Product dose omission [Unknown]
